FAERS Safety Report 8595919-4 (Version None)
Quarter: 2012Q3

REPORT INFORMATION
  Report Type: 
  Country: None (occurrence: None)
  Receive Date: 20120815
  Receipt Date: 20120808
  Transmission Date: 20120928
  Serious: Yes (Other)
  Sender: FDA-Public Use
  Company Number: PL-ROCHE-1099554

PATIENT

DRUGS (1)
  1. AVASTIN [Suspect]
     Indication: LARGE INTESTINE CARCINOMA

REACTIONS (3)
  - HYPERTENSION [None]
  - BONE MARROW FAILURE [None]
  - BLOOD DISORDER [None]
